FAERS Safety Report 8281042-5 (Version None)
Quarter: 2012Q2

REPORT INFORMATION
  Report Type: 
  Country: None (occurrence: None)
  Receive Date: 20120412
  Receipt Date: 20120323
  Transmission Date: 20120825
  Serious: Yes (Death)
  Sender: FDA-Public Use
  Company Number: DE-BAXTER-2012BAX001783

PATIENT

DRUGS (7)
  1. PROCARBAZINE HYDROCHLORIDE [Suspect]
  2. ETOPOSIDE [Suspect]
  3. PREDNISONE TAB [Suspect]
  4. DOXORUBICIN HCL [Suspect]
  5. CYCLOPHOSPHAMIDE [Suspect]
  6. BLEOMYCIN SULFATE [Suspect]
  7. VINCRISTINE [Suspect]

REACTIONS (1)
  - METASTASIS [None]
